FAERS Safety Report 7212048-2 (Version None)
Quarter: 2010Q4

REPORT INFORMATION
  Report Type: 
  Country: None (occurrence: None)
  Receive Date: 20101229
  Receipt Date: 20100801
  Transmission Date: 20110411
  Serious: Yes (Hospitalization, Other)
  Sender: FDA-Public Use
  Company Number: 20109833

PATIENT
  Age: 60 Year
  Sex: Male

DRUGS (1)
  1. LIORESAL [Suspect]
     Indication: MUSCLE SPASTICITY
     Dosage: DAILY, INTRATHECAL
     Route: 037

REACTIONS (5)
  - DEVICE BREAKAGE [None]
  - DEVICE DEPLOYMENT ISSUE [None]
  - DEVICE FAILURE [None]
  - PUMP RESERVOIR ISSUE [None]
  - RESPIRATORY ARREST [None]
